FAERS Safety Report 23242201 (Version 2)
Quarter: 2023Q4

REPORT INFORMATION
  Report Type: Spontaneous
  Country: BR (occurrence: BR)
  Receive Date: 20231129
  Receipt Date: 20231229
  Transmission Date: 20240110
  Serious: Yes (Other)
  Sender: FDA-Public Use
  Company Number: BR-MYLANLABS-2023M1125491

PATIENT
  Weight: 47 kg

DRUGS (2)
  1. XALATAN [Suspect]
     Active Substance: LATANOPROST
     Indication: Glaucoma
     Dosage: 1 GTT DROPS, QD (ONE DROP IN EACH EYE, PM)
     Route: 047
     Dates: start: 2018
  2. AZOPT [Concomitant]
     Active Substance: BRINZOLAMIDE
     Indication: Glaucoma
     Dosage: 1 GTT DROPS, BID (ONE DROP IN EACH EYE, IN MORNING AND AT NIGHT)
     Route: 047
     Dates: start: 2020

REACTIONS (9)
  - Vaginal polyp [Recovered/Resolved]
  - Urethral polyp [Recovered/Resolved]
  - Carcinoembryonic antigen increased [Not Recovered/Not Resolved]
  - Bladder diverticulum [Not Recovered/Not Resolved]
  - Throat irritation [Recovering/Resolving]
  - Weight decreased [Not Recovered/Not Resolved]
  - Carbohydrate antigen 19-9 increased [Not Recovered/Not Resolved]
  - Pulmonary mass [Not Recovered/Not Resolved]
  - Dyspnoea [Unknown]

NARRATIVE: CASE EVENT DATE: 20210101
